FAERS Safety Report 4855597-4 (Version None)
Quarter: 2005Q4

REPORT INFORMATION
  Report Type: 
  Country: None (occurrence: None)
  Receive Date: 20051214
  Receipt Date: 20051129
  Transmission Date: 20060501
  Serious: Yes (Other)
  Sender: FDA-Public Use
  Company Number: 2005-0008804

PATIENT
  Age: 44 Year
  Sex: Female
  Weight: 44 kg

DRUGS (6)
  1. TENOFOVIR DISOPROXIL FUMARATE (TENOFOVIR DISOPROXIL FUMARATE ) [Suspect]
     Indication: HIV INFECTION
     Dosage: 300, 1 IN 1 D, ORAL
     Route: 048
     Dates: start: 20050819, end: 20051028
  2. KALETRA [Concomitant]
  3. COMBIVIR [Concomitant]
  4. MULTIVITAMIN (MULTIVITAMIN) [Concomitant]
  5. VITAMIN C (ASCORBIC ACID) [Concomitant]
  6. IRON (IRON) [Concomitant]

REACTIONS (2)
  - DRUG EXPOSURE DURING PREGNANCY [None]
  - SMALL FOR DATES BABY [None]
